FAERS Safety Report 6249952-8 (Version None)
Quarter: 2009Q2

REPORT INFORMATION
  Report Type: 
  Country: None (occurrence: None)
  Receive Date: 20090625
  Receipt Date: 20090506
  Transmission Date: 20091009
  Serious: Yes (Hospitalization)
  Sender: FDA-Public Use
  Company Number: TPA2009A00949

PATIENT
  Sex: Female

DRUGS (2)
  1. KAPIDEX [Suspect]
     Dosage: 60 MG
  2. DIGOXIN [Suspect]

REACTIONS (2)
  - CARDIOACTIVE DRUG LEVEL INCREASED [None]
  - MALAISE [None]
